FAERS Safety Report 16759354 (Version 1)
Quarter: 2019Q3

REPORT INFORMATION
  Report Type: Spontaneous
  Country: US (occurrence: US)
  Receive Date: 20190830
  Receipt Date: 20190830
  Transmission Date: 20191005
  Serious: Yes (Life-Threatening, Hospitalization, Other)
  Sender: FDA-Public Use
  Company Number: US-MYLANLABS-2019M1081006

PATIENT
  Age: 74 Year
  Sex: Female

DRUGS (1)
  1. HEPARIN [Suspect]
     Active Substance: HEPARIN SODIUM
     Indication: PULMONARY EMBOLISM
     Dosage: UNK
     Route: 050

REACTIONS (7)
  - Haemodynamic instability [Recovered/Resolved]
  - Retroperitoneal haemorrhage [Recovered/Resolved]
  - Haemorrhagic cyst [Recovered/Resolved]
  - Pancreatic cyst rupture [Recovered/Resolved]
  - Blood loss anaemia [Unknown]
  - Peritoneal haemorrhage [Recovered/Resolved]
  - Vascular compression [Recovered/Resolved]
